FAERS Safety Report 19435324 (Version 1)
Quarter: 2021Q2

REPORT INFORMATION
  Report Type: Spontaneous
  Country: CN (occurrence: CN)
  Receive Date: 20210617
  Receipt Date: 20210617
  Transmission Date: 20210717
  Serious: Yes (Congenital Anomaly, Other)
  Sender: FDA-Public Use
  Company Number: CN-SA-2021SA193622

PATIENT

DRUGS (4)
  1. ASTRAGALUS MEMBRANACEUS [Suspect]
     Active Substance: ASTRAGALUS PROPINQUUS ROOT\HERBALS
     Dosage: UNK
     Route: 064
  2. ENOXAPARIN SODIUM. [Suspect]
     Active Substance: ENOXAPARIN SODIUM
     Dosage: UNK
     Route: 064
  3. ASPIRINE [Concomitant]
     Active Substance: ASPIRIN
     Dosage: UNK
     Route: 064
  4. PREDNISONE ACETATE [Concomitant]
     Active Substance: PREDNISONE ACETATE
     Dosage: UNK
     Route: 064

REACTIONS (5)
  - Atrial septal defect [Unknown]
  - Foetal growth restriction [Recovered/Resolved]
  - Foetal exposure during pregnancy [Unknown]
  - Hypospadias [Unknown]
  - Patent ductus arteriosus [Unknown]
